FAERS Safety Report 7330792-3 (Version None)
Quarter: 2011Q1

REPORT INFORMATION
  Report Type: 
  Country: None (occurrence: None)
  Receive Date: 20110304
  Receipt Date: 20110301
  Transmission Date: 20110831
  Serious: Yes (Other)
  Sender: FDA-Public Use
  Company Number: US-PFIZER INC-2011027244

PATIENT
  Sex: Female

DRUGS (7)
  1. GEODON [Suspect]
     Dosage: 60 MG, UNK
     Dates: start: 20100523
  2. GEODON [Suspect]
     Dosage: 120 MG, UNK
     Route: 048
     Dates: start: 20100619
  3. WELLBUTRIN [Concomitant]
     Dosage: 300 MG, 1X/DAY
     Route: 048
     Dates: start: 20010101
  4. CYMBALTA [Concomitant]
     Dosage: 30 MG, 1X/DAY
     Route: 048
     Dates: start: 20090205
  5. GEODON [Suspect]
     Indication: BIPOLAR I DISORDER
     Dosage: 20 MG, UNK
     Dates: start: 20100517
  6. KLONOPIN [Concomitant]
     Dosage: 0.5 MG, UNK
     Route: 048
  7. GEODON [Suspect]
     Dosage: 60 MG, UNK
     Dates: start: 20110122, end: 20110201

REACTIONS (2)
  - TARDIVE DYSKINESIA [None]
  - DYSKINESIA [None]
